FAERS Safety Report 15745961 (Version 1)
Quarter: 2018Q4

REPORT INFORMATION
  Report Type: Spontaneous
  Country: US (occurrence: US)
  Receive Date: 20181220
  Receipt Date: 20181220
  Transmission Date: 20190205
  Serious: Yes (Other)
  Sender: FDA-Public Use
  Company Number: US-ASTRAZENECA-2018SF60322

PATIENT
  Sex: Female

DRUGS (2)
  1. FASLODEX [Suspect]
     Active Substance: FULVESTRANT
     Indication: BREAST CANCER FEMALE
     Route: 030
     Dates: start: 20180906
  2. IBRANCE [Suspect]
     Active Substance: PALBOCICLIB
     Indication: BREAST CANCER FEMALE
     Dosage: 100 MG BY DAILY FOR 21 DAYS ON AND 7 DAYS OFF
     Route: 048
     Dates: start: 20180906

REACTIONS (6)
  - Eye pruritus [Not Recovered/Not Resolved]
  - Dry eye [Not Recovered/Not Resolved]
  - Bone marrow failure [Recovering/Resolving]
  - Alopecia [Not Recovered/Not Resolved]
  - Stomatitis [Not Recovered/Not Resolved]
  - Diarrhoea [Recovered/Resolved]
